FAERS Safety Report 7285728-0 (Version None)
Quarter: 2011Q1

REPORT INFORMATION
  Report Type: 
  Country: None (occurrence: None)
  Receive Date: 20110210
  Receipt Date: 20110119
  Transmission Date: 20110831
  Serious: No
  Sender: FDA-Public Use
  Company Number: US-PFIZER INC-US-WYE-H18430110

PATIENT
  Sex: Female

DRUGS (5)
  1. BENADRYL [Suspect]
  2. ALEVE [Suspect]
  3. ADVIL [Suspect]
  4. AMITRIPTYLINE HCL [Suspect]
  5. LYRICA [Suspect]

REACTIONS (1)
  - DRUG INEFFECTIVE [None]
